FAERS Safety Report 21664928 (Version 6)
Quarter: 2024Q1

REPORT INFORMATION
  Report Type: Spontaneous
  Country: JP (occurrence: JP)
  Receive Date: 20221130
  Receipt Date: 20240327
  Transmission Date: 20240410
  Serious: Yes (Death, Hospitalization, Other)
  Sender: FDA-Public Use
  Company Number: JP-MSD-2211JPN002946J

PATIENT
  Sex: Female
  Weight: 76 kg

DRUGS (6)
  1. KEYTRUDA [Suspect]
     Active Substance: PEMBROLIZUMAB
     Indication: Lung squamous cell carcinoma stage IV
     Dosage: 200 MILLIGRAM
     Route: 041
     Dates: start: 20220106, end: 20220106
  2. KEYTRUDA [Suspect]
     Active Substance: PEMBROLIZUMAB
     Dosage: 200 MILLIGRAM
     Route: 041
     Dates: start: 20220201, end: 20220201
  3. CARBOPLATIN [Concomitant]
     Active Substance: CARBOPLATIN
     Indication: Lung squamous cell carcinoma stage IV
     Dosage: AUC5, Q3W
     Route: 041
     Dates: start: 20220106, end: 20220207
  4. CARBOPLATIN [Concomitant]
     Active Substance: CARBOPLATIN
     Dosage: AUC5, Q3W
     Route: 041
     Dates: start: 202207
  5. PACLITAXEL [Concomitant]
     Active Substance: PACLITAXEL
     Indication: Lung squamous cell carcinoma stage IV
     Dosage: 200 MILLIGRAM/SQ. METER, Q3W
     Route: 041
     Dates: start: 20220106, end: 20220207
  6. PACLITAXEL [Concomitant]
     Active Substance: PACLITAXEL
     Dosage: 200 MILLIGRAM/SQ. METER, Q3W
     Route: 041
     Dates: start: 202207

REACTIONS (4)
  - Immune-mediated hepatic disorder [Recovering/Resolving]
  - Cholangitis sclerosing [Recovering/Resolving]
  - Malignant neoplasm progression [Fatal]
  - Off label use [Unknown]

NARRATIVE: CASE EVENT DATE: 20220101
